FAERS Safety Report 22832291 (Version 3)
Quarter: 2024Q1

REPORT INFORMATION
  Report Type: Spontaneous
  Country: AU (occurrence: AU)
  Receive Date: 20230817
  Receipt Date: 20240125
  Transmission Date: 20240410
  Serious: Yes (Hospitalization)
  Sender: FDA-Public Use
  Company Number: AU-MYLANLABS-2023M1085800

PATIENT
  Age: 82 Year
  Sex: Female

DRUGS (7)
  1. VERAPAMIL [Interacting]
     Active Substance: VERAPAMIL HYDROCHLORIDE
     Indication: Palpitations
     Dosage: 40 MILLIGRAM, BID (IMMEDIATE-RELEASE)
     Route: 065
  2. ATORVASTATIN [Interacting]
     Active Substance: ATORVASTATIN
     Indication: Dyslipidaemia
     Dosage: 40 MILLIGRAM, QD (NOCTE)
     Route: 065
  3. HYDROXYCHLOROQUINE [Concomitant]
     Active Substance: HYDROXYCHLOROQUINE
     Indication: Sjogren^s syndrome
     Dosage: 200 MILLIGRAM, QD
     Route: 065
  4. ASPIRIN [Concomitant]
     Active Substance: ASPIRIN
     Indication: Prophylaxis
     Dosage: 100 MILLIGRAM, QD
     Route: 065
  5. MAGNESIUM [Concomitant]
     Active Substance: MAGNESIUM
     Indication: Supplementation therapy
     Dosage: TAKEN AS PER DIRECTIONS
     Route: 065
  6. FISH OIL [Concomitant]
     Active Substance: FISH OIL
     Indication: Supplementation therapy
     Dosage: TAKEN AS PER DIRECTIONS
     Route: 065
  7. VITAMIN C [Concomitant]
     Active Substance: ASCORBIC ACID
     Indication: Supplementation therapy
     Dosage: TAKEN AS PER DIRECTIONS
     Route: 065

REACTIONS (6)
  - Cryoglobulinaemia [Recovered/Resolved]
  - Condition aggravated [Recovered/Resolved]
  - Cutaneous vasculitis [Recovered/Resolved]
  - Type III immune complex mediated reaction [Recovered/Resolved]
  - Drug interaction [Recovered/Resolved]
  - Off label use [Unknown]
